FAERS Safety Report 7050283-7 (Version None)
Quarter: 2010Q4

REPORT INFORMATION
  Report Type: 
  Country: None (occurrence: None)
  Receive Date: 20101018
  Receipt Date: 20100917
  Transmission Date: 20110411
  Serious: No
  Sender: FDA-Public Use
  Company Number: US-BAYER-201021623BCC

PATIENT
  Age: 18 Year
  Sex: Male
  Weight: 98 kg

DRUGS (3)
  1. ALEVE (CAPLET) [Suspect]
     Indication: BURSA INJURY
     Dosage: TOTAL DAILY DOSE: 880 MG  UNIT DOSE: 220 MG
     Route: 048
     Dates: start: 20100917
  2. MULTI-VITAMIN [Concomitant]
  3. GLUCOSAMINE [Concomitant]

REACTIONS (1)
  - NO ADVERSE EVENT [None]
